FAERS Safety Report 20428888 (Version 2)
Quarter: 2022Q4

REPORT INFORMATION
  Report Type: Spontaneous
  Country: PL (occurrence: PL)
  Receive Date: 20220204
  Receipt Date: 20221021
  Transmission Date: 20230113
  Serious: Yes (Life-Threatening, Hospitalization, Other)
  Sender: FDA-Public Use
  Company Number: PL-Accord-252187

PATIENT
  Age: 29 Year
  Sex: Female

DRUGS (5)
  1. BUPROPION [Interacting]
     Active Substance: BUPROPION
     Indication: Obesity
     Dosage: FIRST 6 DAYS AT A DOSE OF 150 MG / DAY, THEN 300 MG / DAY
  2. ONDANSETRON [Interacting]
     Active Substance: ONDANSETRON
     Indication: Nausea
     Dosage: 16 MG / DAY.
  3. SEMAGLUTIDE [Interacting]
     Active Substance: SEMAGLUTIDE
     Indication: Obesity
     Dosage: 0.5 MG SUBCUTANEOUSLY 1 * WEEK
     Route: 058
  4. BUPROPION HYDROCHLORIDE\NALTREXONE HYDROCHLORIDE [Interacting]
     Active Substance: BUPROPION HYDROCHLORIDE\NALTREXONE HYDROCHLORIDE
     Indication: Obesity
     Dosage: NALTREXONE (8 MG) AND BUPROPION (90 MG): TWO TABLETS AFTER DINNER
  5. VORTIOXETINE [Interacting]
     Active Substance: VORTIOXETINE
     Indication: Obesity
     Dosage: 10 MG AFTER THE LAST MEAL

REACTIONS (6)
  - Drug interaction [Unknown]
  - Myopathy [Recovered/Resolved]
  - Myoglobinuria [Recovered/Resolved]
  - Serotonin syndrome [Recovered/Resolved]
  - Renal failure [Recovered/Resolved]
  - Rhabdomyolysis [Recovering/Resolving]
